FAERS Safety Report 23298028 (Version 1)
Quarter: 2023Q4

REPORT INFORMATION
  Report Type: Spontaneous
  Country: JP (occurrence: JP)
  Receive Date: 20231214
  Receipt Date: 20231214
  Transmission Date: 20240110
  Serious: Yes (Hospitalization, Other)
  Sender: FDA-Public Use
  Company Number: JP-PMDA-i2310004967001

PATIENT
  Age: 61 Year
  Sex: Male
  Weight: 69.1 kg

DRUGS (14)
  1. CYCLOPHOSPHAMIDE [Suspect]
     Active Substance: CYCLOPHOSPHAMIDE
     Indication: Lymphoma
     Dosage: 1280 MG(750 MG/M2(100%)), ONCE A DAY, DR, FIRST COURSE OF POLAR-CHP REGIMEN
     Route: 041
     Dates: start: 20230828, end: 20230828
  2. DOXORUBICIN [Suspect]
     Active Substance: DOXORUBICIN
     Indication: Lymphoma
     Dosage: 85.5 MG(50 MG/M2(100%)), DOSAGE FORM: INJECTION, ONCE A DAY, FIRST COURSE OF POLAR-CHP REGIMEN
     Route: 041
     Dates: start: 20230828, end: 20230828
  3. POLIVY [Suspect]
     Active Substance: POLATUZUMAB VEDOTIN-PIIQ
     Indication: Lymphoma
     Dosage: 120 MG(1.8 MG/KG(100%)), ONCE A DAY, FIRST COURSE OF POLAR-CHP REGIMEN(GENETICAL RECOMBINATION)
     Route: 041
     Dates: start: 20230828, end: 20230828
  4. RITUXIMAB [Suspect]
     Active Substance: RITUXIMAB
     Indication: Lymphoma
     Dosage: 640 MG(375 MG/M2(100%)), ONCE A DAY, FIRST COURSE OF POLAR-CHP REGIMEN
     Route: 065
     Dates: start: 20230829, end: 20230829
  5. PREDNISOLONE [Suspect]
     Active Substance: PREDNISOLONE
     Indication: Lymphoma
     Dosage: 100 MG/BODY, ONCE A DAY, FIRST COURSE OF POLAR-CHP REGIMEN
     Route: 065
     Dates: start: 20230828, end: 20230901
  6. PREDONINE [Concomitant]
     Active Substance: PREDNISOLONE
     Dosage: 100 MG, ONCE A DAY, DOSAGE FORM: UNKNOWN
     Route: 065
     Dates: start: 20230828, end: 20230901
  7. POLARAMINE [Concomitant]
     Active Substance: DEXCHLORPHENIRAMINE MALEATE
     Dosage: UNK
     Route: 065
  8. GRANISETRON [Concomitant]
     Active Substance: GRANISETRON
     Dosage: UNK
     Route: 065
  9. PEGFILGRASTIM [Concomitant]
     Active Substance: PEGFILGRASTIM
     Dosage: UNK
     Route: 065
     Dates: start: 20230830, end: 20230830
  10. ACETAMINOPHEN [Concomitant]
     Active Substance: ACETAMINOPHEN
     Dosage: UNK
     Route: 065
  11. APREPITANT [Concomitant]
     Active Substance: APREPITANT
     Dosage: UNK
     Route: 065
  12. DULOXETINE [Concomitant]
     Active Substance: DULOXETINE
     Dosage: UNK
     Route: 065
  13. VONOPRAZAN FUMARATE [Concomitant]
     Active Substance: VONOPRAZAN FUMARATE
     Dosage: UNK
     Route: 065
  14. SULFAMETHOXAZOLE\TRIMETHOPRIM [Concomitant]
     Active Substance: SULFAMETHOXAZOLE\TRIMETHOPRIM
     Dosage: UNK
     Route: 065

REACTIONS (2)
  - Pancytopenia [Recovered/Resolved]
  - Neutrophil count decreased [Recovered/Resolved]

NARRATIVE: CASE EVENT DATE: 20230904
